FAERS Safety Report 8551846-X (Version None)
Quarter: 2012Q3

REPORT INFORMATION
  Report Type: 
  Country: None (occurrence: None)
  Receive Date: 20120730
  Receipt Date: 20120720
  Transmission Date: 20120928
  Serious: Yes (Other)
  Sender: FDA-Public Use
  Company Number: US-ASTRAZENECA-2011SE21164

PATIENT
  Age: 45 Year
  Sex: Male
  Weight: 87.1 kg

DRUGS (3)
  1. SEROQUEL [Suspect]
     Route: 048
  2. SEROQUEL [Suspect]
     Route: 048
  3. SEROQUEL [Suspect]
     Route: 048

REACTIONS (8)
  - DEPRESSION [None]
  - INSOMNIA [None]
  - RAPID EYE MOVEMENTS SLEEP ABNORMAL [None]
  - NIGHTMARE [None]
  - SUICIDAL IDEATION [None]
  - DRUG DOSE OMISSION [None]
  - STRESS [None]
  - MALAISE [None]
